FAERS Safety Report 8177349-2 (Version None)
Quarter: 2012Q1

REPORT INFORMATION
  Report Type: 
  Country: None (occurrence: None)
  Receive Date: 20120301
  Receipt Date: 20120224
  Transmission Date: 20120608
  Serious: Yes (Hospitalization)
  Sender: FDA-Public Use
  Company Number: US-BAYER-2012-011692

PATIENT
  Age: 47 Year
  Sex: Female

DRUGS (5)
  1. YAZ [Suspect]
  2. METOCLOPRAMIDE [Concomitant]
     Dosage: 10 MG, UNK
  3. XANAX [Concomitant]
     Dosage: 0.25 MG, UNK
  4. PROPYLTHIOURACIL [Concomitant]
     Dosage: 150 MG, QD
  5. LORAZEPAM [Concomitant]
     Dosage: 0.5 MG, UNK

REACTIONS (2)
  - DEEP VEIN THROMBOSIS [None]
  - PELVIC VENOUS THROMBOSIS [None]
